FAERS Safety Report 10514635 (Version 8)
Quarter: 2016Q2

REPORT INFORMATION
  Report Type: Spontaneous
  Country: US (occurrence: US)
  Receive Date: 20141013
  Receipt Date: 20160526
  Transmission Date: 20160815
  Serious: Yes (Hospitalization, Other)
  Sender: FDA-Public Use
  Company Number: US-009507513-1410USA005996

PATIENT
  Sex: Male
  Weight: 126.53 kg

DRUGS (7)
  1. PROSCAR [Suspect]
     Active Substance: FINASTERIDE
     Dosage: 5 MG, QD
     Route: 048
     Dates: start: 20040629
  2. AVANDIA [Concomitant]
     Active Substance: ROSIGLITAZONE MALEATE
     Dosage: UNK
     Dates: start: 2002
  3. ENALAPRIL MALEATE. [Concomitant]
     Active Substance: ENALAPRIL MALEATE
     Dosage: UNK
     Dates: start: 2004
  4. PROSCAR [Suspect]
     Active Substance: FINASTERIDE
     Indication: BENIGN PROSTATIC HYPERPLASIA
     Dosage: 5 MG, QD
     Route: 048
     Dates: start: 20060105, end: 20081104
  5. FINASTERIDE. [Suspect]
     Active Substance: FINASTERIDE
     Indication: BENIGN PROSTATIC HYPERPLASIA
     Dosage: 5 MG, QD
     Route: 048
     Dates: start: 20060719, end: 20141230
  6. FINASTERIDE. [Suspect]
     Active Substance: FINASTERIDE
     Indication: BENIGN PROSTATIC HYPERPLASIA
     Dosage: 5 MG, QD
     Route: 048
     Dates: start: 20060105
  7. LIPITOR [Concomitant]
     Active Substance: ATORVASTATIN CALCIUM
     Dosage: UNK
     Dates: start: 2000

REACTIONS (61)
  - Diabetes mellitus inadequate control [Unknown]
  - Haematuria [Recovered/Resolved]
  - International normalised ratio increased [Unknown]
  - Cardiomyopathy [Unknown]
  - Hypertension [Unknown]
  - Transient ischaemic attack [Unknown]
  - Vitamin D deficiency [Unknown]
  - Iron deficiency anaemia [Unknown]
  - Cataract operation [Unknown]
  - Back pain [Unknown]
  - Arthritis [Unknown]
  - Organic erectile dysfunction [Not Recovered/Not Resolved]
  - Chronic obstructive pulmonary disease [Unknown]
  - Cardiac pacemaker insertion [Unknown]
  - Urinary tract infection [Unknown]
  - Vertigo [Unknown]
  - Cataract [Unknown]
  - Prostatic specific antigen increased [Unknown]
  - Pneumonia [Unknown]
  - Atrial fibrillation [Unknown]
  - Arthritis [Unknown]
  - Anxiety [Unknown]
  - Stress [Unknown]
  - Cystitis radiation [Unknown]
  - Fatigue [Unknown]
  - Osteoarthritis [Unknown]
  - Coronary artery disease [Unknown]
  - Genital atrophy [Unknown]
  - Gout [Unknown]
  - Sinus node dysfunction [Unknown]
  - Loss of libido [Unknown]
  - Cystitis haemorrhagic [Unknown]
  - Oesophagitis [Unknown]
  - Gastrooesophageal reflux disease [Unknown]
  - Urinary retention postoperative [Unknown]
  - Urinary tract infection [Unknown]
  - Cardiac operation [Unknown]
  - Aortic valve stenosis [Unknown]
  - Chronic kidney disease [Not Recovered/Not Resolved]
  - Sciatica [Unknown]
  - Muscle atrophy [Unknown]
  - Postoperative fever [Unknown]
  - Constipation [Unknown]
  - Rhinitis allergic [Unknown]
  - Prostate cancer metastatic [Not Recovered/Not Resolved]
  - Dysuria [Unknown]
  - Chest pain [Not Recovered/Not Resolved]
  - Sleep apnoea syndrome [Unknown]
  - Hyperlipidaemia [Unknown]
  - Sexual dysfunction [Not Recovered/Not Resolved]
  - Sinus disorder [Unknown]
  - Acute kidney injury [Not Recovered/Not Resolved]
  - Fulguration [Recovered/Resolved]
  - Type 1 diabetes mellitus [Unknown]
  - Radiotherapy to prostate [Unknown]
  - Reversible ischaemic neurological deficit [Unknown]
  - Renal cyst [Unknown]
  - Rectal haemorrhage [Unknown]
  - Cardiac valve disease [Unknown]
  - Cardiac failure congestive [Unknown]
  - Dry skin [Unknown]

NARRATIVE: CASE EVENT DATE: 200811
